FAERS Safety Report 6232494-3 (Version None)
Quarter: 2009Q2

REPORT INFORMATION
  Report Type: 
  Country: None (occurrence: None)
  Receive Date: 20090612
  Receipt Date: 20090603
  Transmission Date: 20091009
  Serious: Yes (Hospitalization, Other)
  Sender: FDA-Public Use
  Company Number: 2009-00415

PATIENT
  Age: 52 Year
  Sex: Female
  Weight: 91.2 kg

DRUGS (14)
  1. VELCADE [Suspect]
     Indication: MULTIPLE MYELOMA
     Dosage: 1.3 MG/M2, INTRAVENOUS
     Route: 042
     Dates: start: 20081208, end: 20090106
  2. KYTRIL [Concomitant]
  3. PROCRIT [Concomitant]
  4. METOPROLOL TARTRATE [Concomitant]
  5. NOVOLOG [Concomitant]
  6. NORVASC [Concomitant]
  7. DUKE'S MAGIC MOUTHWASH [Concomitant]
  8. PHENERGAN HCL [Concomitant]
  9. NOVOLIN N [Concomitant]
  10. OXYCODONE HCL [Concomitant]
  11. XANAX [Concomitant]
  12. SENNA (SENNA) [Concomitant]
  13. VITAMIN D [Concomitant]
  14. VITAMIN B12 [Concomitant]

REACTIONS (8)
  - BRADYCARDIA [None]
  - CATHETER SITE INFECTION [None]
  - HEPATITIS C [None]
  - HYPERGLYCAEMIA [None]
  - MUSCULAR WEAKNESS [None]
  - OCCULT BLOOD POSITIVE [None]
  - PNEUMONIA [None]
  - STAPHYLOCOCCAL INFECTION [None]
